FAERS Safety Report 17401802 (Version 2)
Quarter: 2020Q1

REPORT INFORMATION
  Report Type: Report from Study
  Country: DE (occurrence: DE)
  Receive Date: 20200211
  Receipt Date: 20200326
  Transmission Date: 20200409
  Serious: Yes (Other)
  Sender: FDA-Public Use
  Company Number: PHHY2014DE067800

PATIENT
  Age: 76 Year
  Sex: Male

DRUGS (1)
  1. SIGNIFOR [Suspect]
     Active Substance: PASIREOTIDE DIASPARTATE
     Indication: PITUITARY-DEPENDENT CUSHING^S SYNDROME
     Dosage: 0.3 MG, BID
     Route: 058
     Dates: start: 20131210, end: 20131228

REACTIONS (3)
  - Adrenal insufficiency [Recovering/Resolving]
  - Adrenal disorder [Unknown]
  - Hypoaldosteronism [Unknown]

NARRATIVE: CASE EVENT DATE: 20140129
